FAERS Safety Report 7595637-5 (Version None)
Quarter: 2011Q3

REPORT INFORMATION
  Report Type: 
  Country: None (occurrence: None)
  Receive Date: 20110707
  Receipt Date: 20110627
  Transmission Date: 20111222
  Serious: Yes (Other)
  Sender: FDA-Public Use
  Company Number: PHHY2011KR57169

PATIENT
  Age: 21 Year
  Sex: Female

DRUGS (4)
  1. VALPROIC ACID [Suspect]
     Indication: MANIA
     Dosage: 800 MG, UNK
  2. QUETIAPINE [Interacting]
     Indication: MANIA
  3. ZIPRASIDONE HYDROCHLORIDE [Concomitant]
     Dosage: UNK
  4. LORAZEPAM [Concomitant]

REACTIONS (3)
  - EUTHYROID SICK SYNDROME [None]
  - BLOOD PROLACTIN INCREASED [None]
  - THYROID FUNCTION TEST ABNORMAL [None]
